FAERS Safety Report 13386234 (Version 1)
Quarter: 2017Q1

REPORT INFORMATION
  Report Type: Spontaneous
  Country: GB (occurrence: GB)
  Receive Date: 20170330
  Receipt Date: 20170330
  Transmission Date: 20170429
  Serious: Yes (Other)
  Sender: FDA-Public Use
  Company Number: GB-AUROBINDO-AUR-APL-2017-31356

PATIENT
  Age: 60 Year
  Sex: Female
  Weight: 73 kg

DRUGS (4)
  1. CLARITHROMYCIN 500MG [Suspect]
     Active Substance: CLARITHROMYCIN
     Indication: CAMPYLOBACTER GASTROENTERITIS
     Dosage: 500 MG, TWO TIMES A DAY
     Dates: start: 20170227
  2. CYCLIZINE [Concomitant]
     Active Substance: CYCLIZINE
     Indication: PRODUCT USED FOR UNKNOWN INDICATION
     Dosage: TAKE ONE TABLET UP TO MAXIMUM OF THREE TIMES DAILY
     Route: 065
     Dates: start: 20170217, end: 20170220
  3. INDAPAMIDE. [Concomitant]
     Active Substance: INDAPAMIDE
     Indication: PRODUCT USED FOR UNKNOWN INDICATION
     Dosage: 1 DF, ONCE A DAY
     Route: 065
     Dates: start: 20141016
  4. RAMIPRIL. [Concomitant]
     Active Substance: RAMIPRIL
     Indication: PRODUCT USED FOR UNKNOWN INDICATION
     Dosage: 1 DF, ONCE A DAY
     Route: 065
     Dates: start: 20150519

REACTIONS (4)
  - Oral pain [Recovered/Resolved]
  - Dysgeusia [Recovered/Resolved]
  - Glossitis [Unknown]
  - Gingival pain [Recovered/Resolved]

NARRATIVE: CASE EVENT DATE: 20170227
